FAERS Safety Report 14364784 (Version 1)
Quarter: 2018Q1

REPORT INFORMATION
  Report Type: Report from Study
  Country: US (occurrence: US)
  Receive Date: 20180108
  Receipt Date: 20180108
  Transmission Date: 20180509
  Serious: No
  Sender: FDA-Public Use
  Company Number: US-RETROPHIN, INC.-2017RTN00116

PATIENT
  Sex: Female
  Weight: 5.9 kg

DRUGS (1)
  1. CHOLBAM [Suspect]
     Active Substance: CHOLIC ACID
     Indication: INBORN ERROR OF LIPID METABOLISM
     Dosage: 50 MG, 2X/DAY (MORNING AND EVENING)
     Route: 048
     Dates: start: 20170817

REACTIONS (5)
  - Gastrooesophageal reflux disease [Unknown]
  - Infantile spitting up [Unknown]
  - Restlessness [Not Recovered/Not Resolved]
  - Teething [Not Recovered/Not Resolved]
  - Blood glucose decreased [Unknown]

NARRATIVE: CASE EVENT DATE: 2017
